FAERS Safety Report 26010920 (Version 1)
Quarter: 2025Q4

REPORT INFORMATION
  Report Type: Report from Study
  Country: CA (occurrence: CA)
  Receive Date: 20251107
  Receipt Date: 20251107
  Transmission Date: 20260117
  Serious: Yes (Other)
  Sender: CELLTRION
  Company Number: CA-CELLTRION INC.-2024CA023869

PATIENT

DRUGS (4)
  1. ADALIMUMAB-AATY [Suspect]
     Active Substance: ADALIMUMAB-AATY
     Indication: Hidradenitis
     Dosage: 40 MG Q5 DAYS
     Route: 058
     Dates: start: 20240925
  2. ADALIMUMAB-AATY [Suspect]
     Active Substance: ADALIMUMAB-AATY
     Dosage: 80 MILLIGRAM EVERY 1 WEEKS
     Route: 058
     Dates: start: 20240925
  3. SIMLANDI [Concomitant]
     Active Substance: ADALIMUMAB-RYVK
     Dosage: 40MG EVERY 7 DAYS
     Route: 065
     Dates: start: 202311
  4. SIMLANDI [Concomitant]
     Active Substance: ADALIMUMAB-RYVK
     Dosage: UNK, EVERY 5 DAYS
     Route: 065
     Dates: start: 2024, end: 20240826

REACTIONS (8)
  - Cerebrospinal fluid leakage [Unknown]
  - Immune system disorder [Unknown]
  - Condition aggravated [Unknown]
  - Off label use [Unknown]
  - Product use issue [Unknown]
  - Product dose omission issue [Unknown]
  - Drug ineffective [Unknown]
  - Loss of personal independence in daily activities [Unknown]

NARRATIVE: CASE EVENT DATE: 20240925
